FAERS Safety Report 11473734 (Version 2)
Quarter: 2015Q4

REPORT INFORMATION
  Report Type: Spontaneous
  Country: US (occurrence: US)
  Receive Date: 20150908
  Receipt Date: 20151005
  Transmission Date: 20160304
  Serious: No
  Sender: FDA-Public Use
  Company Number: US-AMGEN-USASP2015090147

PATIENT
  Age: 72 Year
  Sex: Female

DRUGS (2)
  1. ENBREL [Suspect]
     Active Substance: ETANERCEPT
     Indication: RHEUMATOID ARTHRITIS
     Dosage: 50 MG, UNK
     Route: 065
     Dates: start: 1998
  2. ENBREL [Suspect]
     Active Substance: ETANERCEPT
     Dosage: 25 MG, ONCE WEEKLY (EVERY 5 DAYS)
     Route: 065

REACTIONS (6)
  - Joint swelling [Unknown]
  - Needle issue [Unknown]
  - Pain [Unknown]
  - Drug effect incomplete [Unknown]
  - Paranasal sinus hypersecretion [Unknown]
  - Mobility decreased [Unknown]
